FAERS Safety Report 10314760 (Version 1)
Quarter: 2014Q3

REPORT INFORMATION
  Report Type: Spontaneous
  Country: GB (occurrence: GB)
  Receive Date: 20140718
  Receipt Date: 20140718
  Transmission Date: 20150326
  Serious: Yes (Hospitalization, Other)
  Sender: FDA-Public Use
  Company Number: GB-MYLANLABS-2014S1016409

PATIENT
  Age: 58 Year
  Sex: Female

DRUGS (5)
  1. BISACODYL. [Concomitant]
     Active Substance: BISACODYL
     Indication: CONSTIPATION
  2. PARACETAMOL [Concomitant]
     Active Substance: ACETAMINOPHEN
     Indication: OSTEOARTHRITIS
  3. CODEINE [Concomitant]
     Active Substance: CODEINE
     Indication: OSTEOARTHRITIS
  4. OMEPRAZOLE SODIUM [Concomitant]
     Active Substance: OMEPRAZOLE SODIUM
     Dates: start: 20120401
  5. NAPROXEN. [Suspect]
     Active Substance: NAPROXEN
     Indication: OSTEOARTHRITIS
     Route: 048
     Dates: start: 20110701, end: 20140626

REACTIONS (4)
  - Gastrointestinal haemorrhage [Not Recovered/Not Resolved]
  - Dyspnoea [Unknown]
  - Anaemia [Unknown]
  - Oral pain [Unknown]

NARRATIVE: CASE EVENT DATE: 20140626
